FAERS Safety Report 6931366-6 (Version None)
Quarter: 2010Q3

REPORT INFORMATION
  Report Type: 
  Country: None (occurrence: None)
  Receive Date: 20100819
  Receipt Date: 20100810
  Transmission Date: 20110219
  Serious: Yes (Hospitalization)
  Sender: FDA-Public Use
  Company Number: US-US-EMD SERONO, INC.-7007496

PATIENT
  Sex: Female

DRUGS (2)
  1. REBIF [Suspect]
     Indication: MULTIPLE SCLEROSIS
     Route: 058
     Dates: start: 20100513, end: 20100601
  2. REBIF [Suspect]
     Route: 058
     Dates: start: 20100701

REACTIONS (6)
  - ABDOMINAL DISCOMFORT [None]
  - DEPRESSION [None]
  - FEELING ABNORMAL [None]
  - INFLUENZA LIKE ILLNESS [None]
  - PYREXIA [None]
  - SUICIDAL IDEATION [None]
